FAERS Safety Report 9664306 (Version 4)
Quarter: 2013Q4

REPORT INFORMATION
  Report Type: Spontaneous
  Country: ES (occurrence: ES)
  Receive Date: 20131101
  Receipt Date: 20131121
  Transmission Date: 20140711
  Serious: Yes (Other)
  Sender: FDA-Public Use
  Company Number: ES-PFIZER INC-2013303804

PATIENT
  Age: 73 Year
  Sex: Female

DRUGS (8)
  1. CHAMPIX [Suspect]
     Indication: SMOKING CESSATION THERAPY
     Dosage: 0.5 MG, 1X/DAY
     Route: 048
     Dates: start: 20130225, end: 20130227
  2. CHAMPIX [Suspect]
     Dosage: 0.5 MG, 2X/DAY
     Route: 048
     Dates: start: 20130228, end: 20130303
  3. CHAMPIX [Suspect]
     Dosage: 1 MG, 2X/DAY
     Route: 048
     Dates: start: 20130304, end: 20130525
  4. VERAPAMIL [Concomitant]
     Dosage: 240 MG PER DAY
  5. TORASEMIDE [Concomitant]
     Dosage: 5 MG PER DAY
  6. LISINOPRIL [Concomitant]
     Dosage: 20 MG PER DAY
  7. MOXONIDINE [Concomitant]
     Dosage: 0.2 MG PER DAY
  8. BROMAZEPAM [Concomitant]

REACTIONS (3)
  - Normochromic normocytic anaemia [Recovered/Resolved]
  - Asthenia [Recovered/Resolved]
  - Fatigue [Recovered/Resolved]
